FAERS Safety Report 5001266-X (Version None)
Quarter: 2006Q2

REPORT INFORMATION
  Report Type: 
  Country: None (occurrence: None)
  Receive Date: 20060512
  Receipt Date: 20051206
  Transmission Date: 20061013
  Serious: Yes (Other)
  Sender: FDA-Public Use
  Company Number: GB-ABBOTT-05P-167-0318784-00

PATIENT
  Sex: Male

DRUGS (1)
  1. EPILIM CHRONO TABLETS [Suspect]
     Indication: CONVULSION
     Route: 048

REACTIONS (2)
  - CONVULSION [None]
  - DISEASE RECURRENCE [None]
